FAERS Safety Report 12621709 (Version 1)
Quarter: 2016Q3

REPORT INFORMATION
  Report Type: Spontaneous
  Country: US (occurrence: US)
  Receive Date: 20160804
  Receipt Date: 20160804
  Transmission Date: 20161109
  Serious: Yes (Other)
  Sender: FDA-Public Use
  Company Number: US-AUROBINDO-AUR-APU-2016-05451

PATIENT

DRUGS (1)
  1. DEXTROAMPHET SACCHARAT, AMPHET ASPARTATE, DEXTROAMPHET SULFATE AND AMPHET SULFAT [Suspect]
     Active Substance: AMPHETAMINE ASPARTATE\AMPHETAMINE SULFATE\DEXTROAMPHETAMINE SACCHARATE\DEXTROAMPHETAMINE SULFATE
     Indication: ATTENTION DEFICIT/HYPERACTIVITY DISORDER
     Dosage: 30 MG, TWO TIMES A DAY
     Route: 065

REACTIONS (22)
  - Dyspnoea [Unknown]
  - Social avoidant behaviour [Unknown]
  - Mood swings [Unknown]
  - Dry mouth [Unknown]
  - Body temperature abnormal [Unknown]
  - Product substitution issue [Unknown]
  - Headache [Unknown]
  - Depressed mood [Unknown]
  - Speech disorder [Unknown]
  - Hypoaesthesia [Unknown]
  - Disturbance in attention [Unknown]
  - Tremor [Unknown]
  - Chest discomfort [Unknown]
  - Pain [Unknown]
  - Muscle spasms [Unknown]
  - Rash [Unknown]
  - Nausea [Unknown]
  - Agitation [Unknown]
  - Fatigue [Unknown]
  - Anxiety [Unknown]
  - Dizziness [Unknown]
  - Dysphagia [Unknown]
